FAERS Safety Report 5761433-4 (Version None)
Quarter: 2008Q2

REPORT INFORMATION
  Report Type: 
  Country: None (occurrence: None)
  Receive Date: 20080606
  Receipt Date: 20080530
  Transmission Date: 20081010
  Serious: Yes (Hospitalization)
  Sender: FDA-Public Use
  Company Number: US-ABBOTT-06P-163-0346351-00

PATIENT
  Sex: Female
  Weight: 67 kg

DRUGS (17)
  1. RITONAVIR SOFT GELATIN CAPSULES [Suspect]
     Indication: HIV INFECTION
     Route: 048
     Dates: start: 20040624
  2. RITONAVIR SOFT GELATIN CAPSULES [Suspect]
     Route: 048
     Dates: start: 20050411, end: 20050609
  3. RITONAVIR SOFT GELATIN CAPSULES [Suspect]
     Route: 048
     Dates: start: 20050706
  4. TMC114 [Concomitant]
     Indication: HIV INFECTION
     Route: 048
     Dates: start: 20050411, end: 20050609
  5. TMC114 [Concomitant]
     Route: 048
     Dates: start: 20050706
  6. ENFUVERTIDE [Concomitant]
     Indication: HIV INFECTION
     Route: 058
     Dates: start: 20050706
  7. DIDANOSINE [Concomitant]
     Indication: HIV INFECTION
     Route: 048
     Dates: start: 20050706
  8. ABACAVIR [Concomitant]
     Indication: HIV INFECTION
     Route: 048
     Dates: start: 20050706
  9. DAPSONE [Concomitant]
     Indication: INFECTION PROPHYLAXIS
     Route: 048
  10. AZITHROMYCIN [Concomitant]
     Indication: ANTIBIOTIC PROPHYLAXIS
     Route: 048
  11. MELOXICAM [Concomitant]
     Indication: PAIN IN EXTREMITY
     Route: 048
  12. MELOXICAM [Concomitant]
     Indication: ARTHRALGIA
  13. GLUCOSAMINE W/CHONDROITIN SULF./MANGAN./VIT C [Concomitant]
     Indication: NECROSIS ISCHAEMIC
     Route: 048
  14. FERROUS GLUCONATE [Concomitant]
     Indication: ANAEMIA
     Route: 048
  15. FLUCONAZOLE [Concomitant]
     Indication: VULVOVAGINAL MYCOTIC INFECTION
     Route: 048
  16. VITAMIN CAP [Concomitant]
     Indication: GENERAL PHYSICAL CONDITION
     Route: 048
  17. OXYBUTYNIN CHLORIDE [Concomitant]
     Indication: DRUG USE FOR UNKNOWN INDICATION
     Route: 048
     Dates: start: 20050520

REACTIONS (2)
  - HIP ARTHROPLASTY [None]
  - OSTEONECROSIS [None]
